FAERS Safety Report 26188019 (Version 1)
Quarter: 2025Q4

REPORT INFORMATION
  Report Type: Report from Study
  Country: IN (occurrence: IN)
  Receive Date: 20251222
  Receipt Date: 20251222
  Transmission Date: 20260118
  Serious: Yes (Other)
  Sender: NOVARTIS
  Company Number: IN-002147023-NVSC2024IN073548

PATIENT
  Age: 63 Year
  Sex: Female
  Weight: 64.5 kg

DRUGS (11)
  1. RIBOCICLIB [Suspect]
     Active Substance: RIBOCICLIB
     Indication: Breast cancer
     Dosage: 400 MG, QD
     Route: 048
     Dates: start: 20221019
  2. RIBOCICLIB [Suspect]
     Active Substance: RIBOCICLIB
     Indication: Breast cancer metastatic
     Dosage: UNK
     Route: 048
     Dates: start: 20221021
  3. RIBOCICLIB [Suspect]
     Active Substance: RIBOCICLIB
     Dosage: 400 MG, QD (21 DAYS -}1 WEEK GAP)
     Route: 048
     Dates: start: 20250212
  4. RIBOCICLIB [Suspect]
     Active Substance: RIBOCICLIB
     Dosage: 400 MG, QD
     Route: 048
     Dates: start: 20250413
  5. RIBOCICLIB [Suspect]
     Active Substance: RIBOCICLIB
     Dosage: UNK
     Route: 065
     Dates: start: 20251005
  6. FULVESTRANT [Concomitant]
     Active Substance: FULVESTRANT
     Indication: Product used for unknown indication
     Dosage: UNK
     Route: 065
     Dates: start: 20221021
  7. FULVESTRANT [Concomitant]
     Active Substance: FULVESTRANT
     Dosage: UNK
     Route: 065
     Dates: start: 20250811
  8. FULVESTRANT [Concomitant]
     Active Substance: FULVESTRANT
     Dosage: UNK (INJECTION)
     Route: 065
     Dates: start: 20250915
  9. ZOLEDRONIC ACID [Concomitant]
     Active Substance: ZOLEDRONIC ACID
     Indication: Product used for unknown indication
     Dosage: UNK
     Route: 065
  10. ZOLEDRONIC ACID [Concomitant]
     Active Substance: ZOLEDRONIC ACID
     Dosage: UNK
     Route: 065
     Dates: start: 20250714
  11. ZOLEDRONIC ACID [Concomitant]
     Active Substance: ZOLEDRONIC ACID
     Dosage: UNK (INJECTION)
     Route: 065
     Dates: start: 20250923

REACTIONS (19)
  - Atrial fibrillation [Unknown]
  - Hypokalaemia [Unknown]
  - Hypothyroidism [Unknown]
  - Rheumatic heart disease [Unknown]
  - Full blood count decreased [Unknown]
  - Fatigue [Unknown]
  - Dyspnoea [Unknown]
  - Eastern Cooperative Oncology Group performance status abnormal [Unknown]
  - Pain in extremity [Recovering/Resolving]
  - Varicose ulceration [Unknown]
  - Arthritis [Unknown]
  - Blood pressure abnormal [Unknown]
  - Blood potassium abnormal [Unknown]
  - Blood albumin abnormal [Unknown]
  - Upper respiratory tract infection [Unknown]
  - Positron emission tomogram abnormal [Unknown]
  - Bone lesion [Recovered/Resolved]
  - Varicose vein [Unknown]
  - Heart rate increased [Unknown]

NARRATIVE: CASE EVENT DATE: 20230403
